FAERS Safety Report 20195438 (Version 2)
Quarter: 2022Q1

REPORT INFORMATION
  Report Type: Spontaneous
  Country: PL (occurrence: None)
  Receive Date: 20211216
  Receipt Date: 20220202
  Transmission Date: 20220423
  Serious: Yes (Hospitalization)
  Sender: FDA-Public Use
  Company Number: 2021A852013

PATIENT
  Age: 83 Year
  Sex: Female
  Weight: 91 kg

DRUGS (10)
  1. OMEPRAZOLE [Interacting]
     Active Substance: OMEPRAZOLE
     Route: 048
  2. QUETIAPINE [Interacting]
     Active Substance: QUETIAPINE
     Route: 048
  3. ISOSORBIDE MONONITRATE [Interacting]
     Active Substance: ISOSORBIDE MONONITRATE
     Dosage: 1-2 X / 24 H
     Route: 065
  4. METOPROLOL [Concomitant]
     Active Substance: METOPROLOL
     Dosage: 1-0-1
     Route: 065
  5. RAMIPRIL [Concomitant]
     Active Substance: RAMIPRIL
     Dosage: 1-0-0
     Route: 065
  6. TRAMADOL HYDROCHLORIDE [Concomitant]
     Active Substance: TRAMADOL HYDROCHLORIDE
     Dosage: 2.0DF UNKNOWN
     Route: 065
  7. LEVOTHYROXINE SODIUM [Concomitant]
     Active Substance: LEVOTHYROXINE SODIUM
     Dosage: 1-0-0
     Route: 065
  8. SPIRONOLACTONE [Concomitant]
     Active Substance: SPIRONOLACTONE
     Dosage: 0-1-0
     Route: 065
  9. DABIGATRAN [Concomitant]
     Active Substance: DABIGATRAN
     Dosage: 1-0-1
     Route: 065
  10. FUROSEMIDE [Concomitant]
     Active Substance: FUROSEMIDE
     Dosage: 1 X 3 DOSAGE FORM IN 2 DAY
     Route: 065

REACTIONS (2)
  - Drug interaction [Unknown]
  - Hypotension [Unknown]
